FAERS Safety Report 18135547 (Version 3)
Quarter: 2021Q2

REPORT INFORMATION
  Report Type: Spontaneous
  Country: CO (occurrence: CO)
  Receive Date: 20200811
  Receipt Date: 20210512
  Transmission Date: 20210717
  Serious: Yes (Other)
  Sender: FDA-Public Use
  Company Number: CO-PFIZER INC-2020165515

PATIENT
  Sex: Female

DRUGS (3)
  1. SUTENT [Suspect]
     Active Substance: SUNITINIB MALATE
     Indication: GASTROINTESTINAL STROMAL TUMOUR
     Dosage: 25 MG
     Route: 048
     Dates: start: 201912
  2. SUTENT [Suspect]
     Active Substance: SUNITINIB MALATE
     Dosage: 25 MG
     Route: 048
     Dates: start: 20200128, end: 20200704
  3. SUTENT [Suspect]
     Active Substance: SUNITINIB MALATE
     Dosage: 25 MG, ALTERNATE DAY (TAKE ONE DAY AND NOT THE NEXT)
     Route: 048
     Dates: start: 2020

REACTIONS (22)
  - Hypertension [Unknown]
  - Decreased immune responsiveness [Unknown]
  - Pallor [Not Recovered/Not Resolved]
  - Stress [Unknown]
  - Nervousness [Unknown]
  - Cerebral ischaemia [Not Recovered/Not Resolved]
  - Loss of consciousness [Not Recovered/Not Resolved]
  - Delirium [Unknown]
  - Intentional dose omission [Unknown]
  - Amnesia [Not Recovered/Not Resolved]
  - Eye disorder [Not Recovered/Not Resolved]
  - Decreased appetite [Unknown]
  - Gait inability [Unknown]
  - Depression [Not Recovered/Not Resolved]
  - Migraine [Unknown]
  - Headache [Unknown]
  - Mental disorder [Not Recovered/Not Resolved]
  - Aphasia [Not Recovered/Not Resolved]
  - Vertigo [Not Recovered/Not Resolved]
  - Intentional product misuse [Unknown]
  - Influenza like illness [Unknown]
  - Hypersensitivity [Unknown]

NARRATIVE: CASE EVENT DATE: 2020
